FAERS Safety Report 20342975 (Version 2)
Quarter: 2022Q1

REPORT INFORMATION
  Report Type: Spontaneous
  Country: DE (occurrence: DE)
  Receive Date: 20220117
  Receipt Date: 20220118
  Transmission Date: 20220424
  Serious: Yes (Other)
  Sender: FDA-Public Use
  Company Number: DE-UCBSA-2022001017

PATIENT
  Sex: Male

DRUGS (1)
  1. VIMPAT [Suspect]
     Active Substance: LACOSAMIDE
     Indication: Product used for unknown indication
     Dosage: 100 MILLIGRAM, UNK
     Route: 048
     Dates: start: 202109

REACTIONS (16)
  - Vein rupture [Unknown]
  - Hallucination [Unknown]
  - Peripheral swelling [Unknown]
  - Muscle twitching [Unknown]
  - Paraesthesia [Unknown]
  - Headache [Unknown]
  - Constipation [Unknown]
  - Flatulence [Unknown]
  - Tinnitus [Unknown]
  - Sleep disorder [Unknown]
  - Fatigue [Unknown]
  - Nausea [Unknown]
  - Hyperhidrosis [Unknown]
  - Cold sweat [Unknown]
  - Pain in extremity [Unknown]
  - Peripheral coldness [Unknown]

NARRATIVE: CASE EVENT DATE: 20211221
